FAERS Safety Report 6297845-2 (Version None)
Quarter: 2009Q3

REPORT INFORMATION
  Report Type: 
  Country: None (occurrence: None)
  Receive Date: 20090804
  Receipt Date: 20090804
  Transmission Date: 20100115
  Serious: Yes (Death)
  Sender: FDA-Public Use
  Company Number: None

PATIENT
  Age: 81 Year
  Sex: Female
  Weight: 74.3899 kg

DRUGS (1)
  1. SIMVASTATIN [Suspect]
     Indication: HYPERCHOLESTEROLAEMIA
     Dosage: 80 MG, DAILY, PO
     Route: 048
     Dates: start: 20081228, end: 20090629

REACTIONS (4)
  - ASTHENIA [None]
  - FALL [None]
  - PNEUMONIA [None]
  - RHABDOMYOLYSIS [None]
